FAERS Safety Report 23967284 (Version 1)
Quarter: 2024Q2

REPORT INFORMATION
  Report Type: Spontaneous
  Country: AT (occurrence: AT)
  Receive Date: 20240612
  Receipt Date: 20240612
  Transmission Date: 20240716
  Serious: Yes (Other)
  Sender: FDA-Public Use
  Company Number: AT-009507513-2406AUT003037

PATIENT
  Age: 65 Year
  Sex: Female

DRUGS (2)
  1. PEMBROLIZUMAB [Suspect]
     Active Substance: PEMBROLIZUMAB
     Indication: Breast cancer
     Dosage: UNK
  2. PEMBROLIZUMAB [Suspect]
     Active Substance: PEMBROLIZUMAB
     Dosage: UNK, POSTNEOADJUVANT

REACTIONS (9)
  - Hypothyroidism [Unknown]
  - Pericardial effusion [Unknown]
  - Brachytherapy to breast [Unknown]
  - Tumour marker increased [Unknown]
  - Pleural effusion [Unknown]
  - Lymphadenopathy mediastinal [Unknown]
  - Central venous catheter removal [Unknown]
  - Therapy partial responder [Unknown]
  - Product use issue [Unknown]

NARRATIVE: CASE EVENT DATE: 20231101
